FAERS Safety Report 15115374 (Version 1)
Quarter: 2018Q3

REPORT INFORMATION
  Report Type: Spontaneous
  Country: US (occurrence: US)
  Receive Date: 20180705
  Receipt Date: 20180705
  Transmission Date: 20181010
  Serious: Yes (Other)
  Sender: FDA-Public Use
  Company Number: None

PATIENT
  Age: 57 Year
  Sex: Male
  Weight: 214 kg

DRUGS (3)
  1. HYDROCORTISONE. [Concomitant]
     Active Substance: HYDROCORTISONE
     Dates: start: 20180529, end: 20180529
  2. DIPOHENHYDRAMINE [Concomitant]
     Dates: start: 20180529, end: 20180529
  3. GAMUNEX [Suspect]
     Active Substance: HUMAN IMMUNOGLOBULIN G
     Indication: NECROTISING MYOSITIS
     Route: 042
     Dates: start: 20180529, end: 20180530

REACTIONS (3)
  - Cough [None]
  - Throat irritation [None]
  - Flushing [None]

NARRATIVE: CASE EVENT DATE: 20180529
